FAERS Safety Report 16437092 (Version 2)
Quarter: 2019Q2

REPORT INFORMATION
  Report Type: Spontaneous
  Country: DE (occurrence: DE)
  Receive Date: 20190615
  Receipt Date: 20190615
  Transmission Date: 20190711
  Serious: Yes (Other)
  Sender: FDA-Public Use
  Company Number: PHHY2019DE132045

PATIENT
  Age: 46 Year
  Sex: Male

DRUGS (7)
  1. CICLOSPORIN [Suspect]
     Active Substance: CYCLOSPORINE
     Dosage: 5 MG/KG, BID
     Route: 048
  2. INDOMETHACIN. [Suspect]
     Active Substance: INDOMETHACIN
     Indication: EOSINOPHILIC PUSTULAR FOLLICULITIS
     Dosage: 100 MG, QD
     Route: 048
  3. PREDNISOLONE. [Concomitant]
     Active Substance: PREDNISOLONE
     Indication: EOSINOPHILIC PUSTULAR FOLLICULITIS
     Dosage: 100 MG, INITIAL DOSE
     Route: 048
  4. INDOMETHACIN. [Suspect]
     Active Substance: INDOMETHACIN
     Indication: DERMATITIS ATOPIC
  5. CICLOSPORIN [Suspect]
     Active Substance: CYCLOSPORINE
     Indication: DERMATITIS ATOPIC
     Dosage: 5 MG/KG, BID
     Route: 048
  6. PREDNISOLONE. [Concomitant]
     Active Substance: PREDNISOLONE
     Indication: DERMATITIS ATOPIC
  7. CICLOSPORIN [Suspect]
     Active Substance: CYCLOSPORINE
     Indication: EOSINOPHILIC PUSTULAR FOLLICULITIS
     Dosage: 2.5 MG/KG, BID
     Route: 048

REACTIONS (7)
  - Drug ineffective [Unknown]
  - Dermatitis atopic [Unknown]
  - Product use in unapproved indication [Unknown]
  - Fatigue [Unknown]
  - Glomerular filtration rate abnormal [Unknown]
  - Eosinophilic pustular folliculitis [Unknown]
  - Disease progression [Unknown]
